FAERS Safety Report 19485398 (Version 1)
Quarter: 2021Q3

REPORT INFORMATION
  Report Type: Spontaneous
  Country: US (occurrence: US)
  Receive Date: 20210702
  Receipt Date: 20210702
  Transmission Date: 20211014
  Serious: No
  Sender: FDA-Public Use
  Company Number: US-AMGEN-USASP2021099795

PATIENT
  Sex: Female
  Weight: 95.25 kg

DRUGS (5)
  1. OTEZLA [Suspect]
     Active Substance: APREMILAST
     Indication: RHEUMATOID ARTHRITIS
  2. OTEZLA [Suspect]
     Active Substance: APREMILAST
     Indication: PSORIATIC ARTHROPATHY
     Dosage: 30 MILLIGRAM, BID
     Route: 048
     Dates: start: 20191022, end: 2020
  3. OTEZLA [Suspect]
     Active Substance: APREMILAST
     Indication: OSTEOARTHRITIS
  4. SYNTHROID [Concomitant]
     Active Substance: LEVOTHYROXINE SODIUM
     Dosage: UNK
  5. NAPROXEN. [Concomitant]
     Active Substance: NAPROXEN
     Dosage: UNK (500MG, TWICE A DAY, 330MG, TWO IN THE MORNING AND TWO IN AFTERNOON)
     Route: 065

REACTIONS (2)
  - Therapeutic product effect decreased [Unknown]
  - Expired product administered [Unknown]

NARRATIVE: CASE EVENT DATE: 2021
